FAERS Safety Report 6700586-8 (Version None)
Quarter: 2010Q2

REPORT INFORMATION
  Report Type: 
  Country: None (occurrence: None)
  Receive Date: 20100426
  Receipt Date: 20100408
  Transmission Date: 20101027
  Serious: Yes (Other)
  Sender: FDA-Public Use
  Company Number: 2010-00415

PATIENT
  Sex: Male

DRUGS (4)
  1. RAMIPRIL [Suspect]
     Indication: DRUG USE FOR UNKNOWN INDICATION
  2. TAMSULOSIN HCL [Suspect]
     Indication: DRUG USE FOR UNKNOWN INDICATION
     Dates: start: 20090922
  3. AMLODIPINE [Concomitant]
  4. STATIN [Concomitant]

REACTIONS (10)
  - AURICULAR SWELLING [None]
  - EYE SWELLING [None]
  - JOINT SWELLING [None]
  - LIP SWELLING [None]
  - OEDEMA PERIPHERAL [None]
  - PENILE OEDEMA [None]
  - SWELLING FACE [None]
  - SWOLLEN TONGUE [None]
  - TESTICULAR SWELLING [None]
  - VENIPUNCTURE SITE SWELLING [None]
